FAERS Safety Report 24204981 (Version 2)
Quarter: 2024Q3

REPORT INFORMATION
  Report Type: Spontaneous
  Country: PT (occurrence: PT)
  Receive Date: 20240813
  Receipt Date: 20240826
  Transmission Date: 20241016
  Serious: Yes (Death)
  Sender: GILEAD
  Company Number: None

PATIENT
  Age: 85 Year
  Sex: Female

DRUGS (9)
  1. VEKLURY [Suspect]
     Active Substance: REMDESIVIR
     Indication: COVID-19 treatment
     Dosage: 200 MG FIRST DOSE; 100 MG REMAINING 4 DOSES
     Route: 042
     Dates: start: 20220215, end: 20220217
  2. VEKLURY [Suspect]
     Active Substance: REMDESIVIR
     Dosage: 200 MG FIRST DOSE; 100 MG REMAINING 4 DOSES
     Route: 042
     Dates: start: 20220214, end: 20220214
  3. METHYLPREDNISOLONE [Concomitant]
     Active Substance: METHYLPREDNISOLONE
  4. DEXTROSE [Concomitant]
     Active Substance: DEXTROSE\DEXTROSE MONOHYDRATE
  5. ACETYLCYSTEINE [Concomitant]
     Active Substance: ACETYLCYSTEINE
  6. OXYGEN [Concomitant]
     Active Substance: OXYGEN
  7. FUROSEMIDE [Concomitant]
     Active Substance: FUROSEMIDE
  8. IPRATROPIUM BROMIDE [Concomitant]
     Active Substance: IPRATROPIUM BROMIDE\IPRATROPIUM BROMIDE ANHYDROUS
  9. ACETAMINOPHEN [Concomitant]
     Active Substance: ACETAMINOPHEN

REACTIONS (1)
  - Drug ineffective [Fatal]

NARRATIVE: CASE EVENT DATE: 20220217
